FAERS Safety Report 8504827-6 (Version None)
Quarter: 2012Q3

REPORT INFORMATION
  Report Type: 
  Country: None (occurrence: None)
  Receive Date: 20120712
  Receipt Date: 20120706
  Transmission Date: 20120928
  Serious: Yes (Hospitalization)
  Sender: FDA-Public Use
  Company Number: US-AMGEN-USASP2012041998

PATIENT
  Age: 68 Year
  Sex: Female

DRUGS (2)
  1. ENBREL [Suspect]
     Indication: RHEUMATOID ARTHRITIS
     Dosage: 50 MG, QWK
     Dates: start: 20080326
  2. ENBREL [Suspect]
     Indication: PULMONARY FIBROSIS

REACTIONS (11)
  - RHEUMATOID LUNG [None]
  - BLOOD SODIUM DECREASED [None]
  - COUGH [None]
  - OESOPHAGEAL DISCOMFORT [None]
  - RECTAL HAEMORRHAGE [None]
  - GASTROINTESTINAL DISORDER [None]
  - HEPATIC ENZYME INCREASED [None]
  - OESOPHAGEAL DISORDER [None]
  - HEARING IMPAIRED [None]
  - RHEUMATOID ARTHRITIS [None]
  - INJECTION SITE HAEMATOMA [None]
